FAERS Safety Report 5336487-X (Version None)
Quarter: 2007Q2

REPORT INFORMATION
  Report Type: 
  Country: None (occurrence: None)
  Receive Date: 20070524
  Receipt Date: 20070509
  Transmission Date: 20071010
  Serious: Yes (Other)
  Sender: FDA-Public Use
  Company Number: PAR_01566_2007

PATIENT

DRUGS (3)
  1. IBUPROFEN [Suspect]
  2. ASPIRIN [Suspect]
  3. ACETAMINOPHEN [Suspect]

REACTIONS (7)
  - ANGIOEDEMA [None]
  - COUGH [None]
  - DRUG HYPERSENSITIVITY [None]
  - RHINORRHOEA [None]
  - TACHYPNOEA [None]
  - URTICARIA [None]
  - WHEEZING [None]
